FAERS Safety Report 12867290 (Version 4)
Quarter: 2017Q2

REPORT INFORMATION
  Report Type: Report from Study
  Country: TR (occurrence: TR)
  Receive Date: 20161020
  Receipt Date: 20170503
  Transmission Date: 20170830
  Serious: Yes (Other)
  Sender: FDA-Public Use
  Company Number: TR-PFIZER INC-3158637

PATIENT
  Age: 24 Year
  Sex: Male

DRUGS (4)
  1. CANAKINUMAB [Suspect]
     Active Substance: CANAKINUMAB
     Indication: BEHCET^S SYNDROME
     Dosage: UNK
  2. CYCLOSPORINE. [Suspect]
     Active Substance: CYCLOSPORINE
     Indication: BEHCET^S SYNDROME
     Dosage: UNK
  3. ETANERCEPT [Suspect]
     Active Substance: ETANERCEPT
     Indication: BEHCET^S SYNDROME
     Dosage: UNK
  4. METHOTREXATE SODIUM. [Suspect]
     Active Substance: METHOTREXATE SODIUM
     Indication: BEHCET^S SYNDROME
     Dosage: UNK

REACTIONS (2)
  - Drug effect incomplete [Unknown]
  - Meningitis tuberculous [Unknown]
